FAERS Safety Report 4541843-3 (Version None)
Quarter: 2004Q4

REPORT INFORMATION
  Report Type: 
  Country: None (occurrence: None)
  Receive Date: 20041230
  Receipt Date: 20041223
  Transmission Date: 20050328
  Serious: Yes (Other)
  Sender: FDA-Public Use
  Company Number: PHRM2004TN03761

PATIENT
  Age: 70 Year
  Sex: Female

DRUGS (2)
  1. AMLODIPINE [Suspect]
     Route: 048
  2. COTAREG [Suspect]
     Indication: HYPERTENSION
     Route: 048

REACTIONS (3)
  - HYPOTENSION [None]
  - POLYURIA [None]
  - SYNCOPE [None]
